FAERS Safety Report 12335182 (Version 1)
Quarter: 2016Q2

REPORT INFORMATION
  Report Type: Spontaneous
  Country: CA (occurrence: CA)
  Receive Date: 20160504
  Receipt Date: 20160504
  Transmission Date: 20160815
  Serious: Yes (Other)
  Sender: FDA-Public Use
  Company Number: PHHY2016CA058399

PATIENT
  Age: 69 Year
  Sex: Male

DRUGS (2)
  1. TAMSULOSIN SANDOZ [Suspect]
     Active Substance: TAMSULOSIN
     Indication: URINE FLOW DECREASED
     Dosage: 0.4 MG, QD EVERY EVENING
     Route: 065
  2. TAMSULOSIN SANDOZ [Suspect]
     Active Substance: TAMSULOSIN
     Indication: POLLAKIURIA

REACTIONS (2)
  - Abdominal pain upper [Recovering/Resolving]
  - Urinary retention [Recovering/Resolving]
